FAERS Safety Report 23161291 (Version 3)
Quarter: 2023Q4

REPORT INFORMATION
  Report Type: Spontaneous
  Country: KR (occurrence: KR)
  Receive Date: 20231108
  Receipt Date: 20231206
  Transmission Date: 20240109
  Serious: Yes (Other)
  Sender: FDA-Public Use
  Company Number: KR-009507513-2311KOR002050

PATIENT
  Age: 31 Year
  Sex: Female

DRUGS (3)
  1. KEYTRUDA [Suspect]
     Active Substance: PEMBROLIZUMAB
     Indication: Breast cancer female
     Dosage: UNK
     Dates: start: 2023, end: 2023
  2. KEYTRUDA [Suspect]
     Active Substance: PEMBROLIZUMAB
     Dosage: 3RD CYCLE OF ADJUVANT TREATMENT
     Dates: start: 2023, end: 2023
  3. KEYTRUDA [Suspect]
     Active Substance: PEMBROLIZUMAB
     Dosage: 2ND DOSE, 4TH CYCLE OF ADJUVANT THERAPY||
     Dates: start: 20231104, end: 20231104

REACTIONS (7)
  - Respiratory tract oedema [Recovered/Resolved with Sequelae]
  - Respiratory tract oedema [Recovered/Resolved]
  - Genital pain [Recovered/Resolved]
  - Pruritus genital [Recovered/Resolved]
  - Paraesthesia [Recovered/Resolved]
  - Accidental exposure to product [Unknown]
  - Accidental underdose [Unknown]

NARRATIVE: CASE EVENT DATE: 20230101
